FAERS Safety Report 19729585 (Version 13)
Quarter: 2023Q1

REPORT INFORMATION
  Report Type: Spontaneous
  Country: US (occurrence: US)
  Receive Date: 20210821
  Receipt Date: 20230118
  Transmission Date: 20230418
  Serious: Yes (Other)
  Sender: FDA-Public Use
  Company Number: US-UNITED THERAPEUTICS-UNT-2021-016079

PATIENT
  Age: 41 Year
  Sex: Female
  Weight: 69.841 kg

DRUGS (7)
  1. REMODULIN [Suspect]
     Active Substance: TREPROSTINIL
     Indication: Pulmonary arterial hypertension
     Dosage: UNK, CONTINUING
     Route: 058
     Dates: start: 20181025
  2. REMODULIN [Suspect]
     Active Substance: TREPROSTINIL
     Dosage: 0.062 ?G/KG, CONTINUING
     Route: 058
  3. REMODULIN [Suspect]
     Active Substance: TREPROSTINIL
     Dosage: UNK UNK, CONTINUING
     Route: 058
  4. REMODULIN [Suspect]
     Active Substance: TREPROSTINIL
     Dosage: UNK, CONTINUING (AT AN INFUSION RATE 0.02 ML/HR)
     Route: 058
  5. OPSUMIT [Concomitant]
     Active Substance: MACITENTAN
     Indication: Pulmonary arterial hypertension
     Dosage: 10 MG, QD
     Route: 048
  6. XARELTO [Concomitant]
     Active Substance: RIVAROXABAN
     Indication: Product used for unknown indication
     Dosage: UNK
     Route: 065
  7. SILDENAFIL CITRATE [Concomitant]
     Active Substance: SILDENAFIL CITRATE
     Indication: Product used for unknown indication
     Dosage: UNK
     Route: 065

REACTIONS (33)
  - Device dislocation [Recovered/Resolved]
  - Device kink [Unknown]
  - Dyspnoea [Unknown]
  - Discomfort [Unknown]
  - Chest pain [Recovered/Resolved]
  - Headache [Unknown]
  - Infusion site pain [Unknown]
  - Chest discomfort [Unknown]
  - Back pain [Unknown]
  - Painful respiration [Recovering/Resolving]
  - Diarrhoea [Unknown]
  - Infusion site erythema [Unknown]
  - Hyperhidrosis [Unknown]
  - Stress [Unknown]
  - Feeling abnormal [Recovered/Resolved]
  - Fatigue [Unknown]
  - Infusion site reaction [Unknown]
  - Infusion site extravasation [Unknown]
  - Nausea [Unknown]
  - Vomiting [Unknown]
  - Dizziness [Unknown]
  - Presyncope [Unknown]
  - Exposure via skin contact [Unknown]
  - Accidental exposure to product [Unknown]
  - Sensitivity to weather change [Unknown]
  - Device maintenance issue [Unknown]
  - Infusion site swelling [Unknown]
  - Infusion site haemorrhage [Unknown]
  - Infusion site discharge [Unknown]
  - Infusion site pruritus [Unknown]
  - Rash erythematous [Unknown]
  - Infusion site rash [Unknown]
  - Cough [Unknown]

NARRATIVE: CASE EVENT DATE: 20200701
